FAERS Safety Report 4560559-0 (Version None)
Quarter: 2005Q1

REPORT INFORMATION
  Report Type: 
  Country: None (occurrence: None)
  Receive Date: 20050125
  Receipt Date: 20050121
  Transmission Date: 20050727
  Serious: Yes (Hospitalization)
  Sender: FDA-Public Use
  Company Number: 2005001252

PATIENT
  Age: 63 Year
  Sex: Female
  Weight: 90 kg

DRUGS (2)
  1. AVANDAMET [Suspect]
     Route: 048
  2. ZOLPIDEM TARTRATE [Suspect]
     Route: 048

REACTIONS (3)
  - INTENTIONAL MISUSE [None]
  - SOPOR [None]
  - SUICIDE ATTEMPT [None]
